FAERS Safety Report 12835824 (Version 1)
Quarter: 2016Q4

REPORT INFORMATION
  Report Type: Spontaneous
  Country: FR (occurrence: FR)
  Receive Date: 20161011
  Receipt Date: 20161011
  Transmission Date: 20170207
  Serious: Yes (Hospitalization, Other)
  Sender: FDA-Public Use
  Company Number: FR-PFIZER INC-2016461598

PATIENT
  Age: 70 Year
  Sex: Male

DRUGS (14)
  1. GEMCITABINE HYDROCHLORIDE. [Suspect]
     Active Substance: GEMCITABINE HYDROCHLORIDE
     Indication: TRANSITIONAL CELL CARCINOMA
     Dosage: 1688.75 MG, CYCLE 1
     Route: 042
     Dates: start: 20160705
  2. REPAGLINIDE. [Suspect]
     Active Substance: REPAGLINIDE
     Indication: TYPE 2 DIABETES MELLITUS
     Dosage: 1 MG, 3X/DAY
     Route: 048
  3. GEMCITABINE HYDROCHLORIDE. [Suspect]
     Active Substance: GEMCITABINE HYDROCHLORIDE
     Dosage: 2008.13 MG, CYCLE 2
     Route: 042
     Dates: start: 20160728
  4. GEMCITABINE HYDROCHLORIDE. [Suspect]
     Active Substance: GEMCITABINE HYDROCHLORIDE
     Dosage: 1986.88 MG, (DAY 8 OF CYCLE 3 THEN CYCLE 4)
     Dates: start: 20160825
  5. CISPLATINE ACCORD [Suspect]
     Active Substance: CISPLATIN
     Indication: TRANSITIONAL CELL CARCINOMA
     Dosage: 95 MG, CYCLE 1
     Route: 042
     Dates: start: 20160705
  6. LERCAN [Concomitant]
     Active Substance: LERCANIDIPINE
     Dosage: 20 MG, DAILY
     Dates: start: 20160727
  7. DOLIPRANE [Concomitant]
     Active Substance: ACETAMINOPHEN
     Dosage: UNK UNK, AS NEEDED
  8. CISPLATINE ACCORD [Suspect]
     Active Substance: CISPLATIN
     Dosage: 93 MG, CYCLE 2
     Route: 042
     Dates: start: 20160728
  9. CISPLATINE ACCORD [Suspect]
     Active Substance: CISPLATIN
     Dosage: 111 MG, CYCLE 4
     Dates: start: 20160908
  10. LERCAN [Concomitant]
     Active Substance: LERCANIDIPINE
     Dosage: 10 MG, DAILY
  11. CISPLATINE ACCORD [Suspect]
     Active Substance: CISPLATIN
     Dosage: 66 MG, CYCLE 3
     Dates: start: 20160818
  12. APROVEL [Concomitant]
     Active Substance: IRBESARTAN
     Indication: PRODUCT USED FOR UNKNOWN INDICATION
     Dosage: 150 MG, 1X/DAY
     Route: 048
     Dates: end: 20160727
  13. GEMCITABINE HYDROCHLORIDE. [Suspect]
     Active Substance: GEMCITABINE HYDROCHLORIDE
     Dosage: 1997.5 MG (DAY 8 OF SECOND CYLCE AND THEN CYCLE 3)
     Dates: start: 20160803
  14. GEMCITABINE HYDROCHLORIDE. [Suspect]
     Active Substance: GEMCITABINE HYDROCHLORIDE
     Dosage: 1997.5 (DAY 8 OF CYCLE 4)
     Dates: start: 20160915

REACTIONS (2)
  - Hyperkalaemia [Recovering/Resolving]
  - Pyelonephritis acute [Unknown]

NARRATIVE: CASE EVENT DATE: 201607
